FAERS Safety Report 20907858 (Version 3)
Quarter: 2022Q2

REPORT INFORMATION
  Report Type: Spontaneous
  Country: AU (occurrence: AU)
  Receive Date: 20220602
  Receipt Date: 20220609
  Transmission Date: 20220721
  Serious: Yes (Life-Threatening, Other)
  Sender: FDA-Public Use
  Company Number: AU-PFIZER INC-202200773304

PATIENT
  Age: 48 Year
  Sex: Female

DRUGS (3)
  1. LYRICA [Suspect]
     Active Substance: PREGABALIN
     Indication: Neuralgia
     Dosage: UNK
     Dates: start: 2020
  2. LYRICA [Suspect]
     Active Substance: PREGABALIN
     Indication: Back injury
     Dosage: 150 MG, DAILY
  3. LYRICA [Suspect]
     Active Substance: PREGABALIN
     Indication: Intervertebral disc protrusion

REACTIONS (11)
  - Intentional self-injury [Unknown]
  - Suicide attempt [Unknown]
  - Thermal burn [Unknown]
  - Mental impairment [Unknown]
  - Coma [Unknown]
  - Immobile [Unknown]
  - Confusional state [Unknown]
  - Pain [Unknown]
  - Mental disorder [Unknown]
  - Psychological trauma [Unknown]
  - Scar pain [Unknown]
